FAERS Safety Report 5943388-2 (Version None)
Quarter: 2008Q4

REPORT INFORMATION
  Report Type: 
  Country: None (occurrence: None)
  Receive Date: 20081105
  Receipt Date: 20081105
  Transmission Date: 20090506
  Serious: Yes (Hospitalization)
  Sender: FDA-Public Use
  Company Number: None

PATIENT
  Sex: Female
  Weight: 47.7 kg

DRUGS (6)
  1. FLUOROURACIL [Suspect]
     Dosage: 3472 MG
  2. CISPLATIN [Suspect]
     Dosage: 58 MG
  3. ERBITUX [Suspect]
     Dosage: 388 MG
  4. MAGNESIUM OXIDE [Concomitant]
  5. MEVACOR [Concomitant]
  6. NEXIUM [Concomitant]

REACTIONS (5)
  - ANOREXIA [None]
  - ASTHENIA [None]
  - DIARRHOEA [None]
  - FATIGUE [None]
  - HYPOTENSION [None]
